FAERS Safety Report 7012652-0 (Version None)
Quarter: 2010Q3

REPORT INFORMATION
  Report Type: 
  Country: None (occurrence: None)
  Receive Date: 20100924
  Receipt Date: 20100922
  Transmission Date: 20110219
  Serious: Yes (Death)
  Sender: FDA-Public Use
  Company Number: US-GILEAD-2010-0032064

PATIENT
  Age: 78 Year
  Sex: Male
  Weight: 78.088 kg

DRUGS (7)
  1. LETAIRIS [Suspect]
     Indication: PULMONARY ARTERIAL HYPERTENSION
     Route: 048
     Dates: start: 20100526
  2. FUROSEMIDE [Concomitant]
  3. AMLODIPINE BESYLATE [Concomitant]
  4. AMLODIPINE BESYLATE AND BENAZEPRIL HCL [Concomitant]
  5. ETODOLAC [Concomitant]
  6. PREDNISONE TAB [Concomitant]
  7. HYDROXYZINE [Concomitant]

REACTIONS (1)
  - DEATH [None]
